FAERS Safety Report 18500986 (Version 3)
Quarter: 2020Q4

REPORT INFORMATION
  Report Type: Spontaneous
  Country: US (occurrence: US)
  Receive Date: 20201113
  Receipt Date: 20201215
  Transmission Date: 20210114
  Serious: No
  Sender: FDA-Public Use
  Company Number: US-GLAXOSMITHKLINE-US2020AMR224566

PATIENT
  Sex: Female

DRUGS (4)
  1. ZEJULA [Suspect]
     Active Substance: NIRAPARIB
     Dosage: UNK (100MG ALTERNATING WITH 200MG Q,O.D)
  2. ZEJULA [Suspect]
     Active Substance: NIRAPARIB
     Indication: OVARIAN CANCER
     Dosage: 200 MG, QD
     Dates: start: 20201102, end: 20201106
  3. ZEJULA [Suspect]
     Active Substance: NIRAPARIB
     Dosage: 1 DF, QD (1 CAPSULE EVERY OTHER DAY)
     Route: 048
     Dates: start: 20201112
  4. ZEJULA [Suspect]
     Active Substance: NIRAPARIB
     Dosage: 1 DF, QD (1 CAPSULE EVERY DAY)
     Route: 048

REACTIONS (9)
  - Loss of personal independence in daily activities [Unknown]
  - Off label use [Unknown]
  - Constipation [Recovering/Resolving]
  - Blood pressure increased [Recovered/Resolved]
  - Dehydration [Unknown]
  - Heart rate increased [Recovered/Resolved]
  - Ill-defined disorder [Unknown]
  - Insomnia [Unknown]
  - Drug monitoring procedure incorrectly performed [Unknown]
